FAERS Safety Report 8431935-0 (Version None)
Quarter: 2012Q2

REPORT INFORMATION
  Report Type: 
  Country: None (occurrence: None)
  Receive Date: 20120613
  Receipt Date: 20111005
  Transmission Date: 20120825
  Serious: No
  Sender: FDA-Public Use
  Company Number: US-ASTRAZENECA-2011SE59996

PATIENT
  Age: 51 Year
  Sex: Female

DRUGS (2)
  1. RHINOCORT [Suspect]
     Route: 045
  2. NEXIUM [Concomitant]

REACTIONS (4)
  - ADVERSE DRUG REACTION [None]
  - SLEEP APNOEA SYNDROME [None]
  - EPISTAXIS [None]
  - NASAL DISCOMFORT [None]
